FAERS Safety Report 15322026 (Version 1)
Quarter: 2018Q3

REPORT INFORMATION
  Report Type: Spontaneous
  Country: US (occurrence: US)
  Receive Date: 20180827
  Receipt Date: 20180827
  Transmission Date: 20181010
  Serious: No
  Sender: FDA-Public Use
  Company Number: US-BAYER-2018-158022

PATIENT
  Age: 27 Year
  Sex: Female

DRUGS (1)
  1. MIRENA [Suspect]
     Active Substance: LEVONORGESTREL
     Indication: CONTRACEPTION
     Dosage: 20 MCG/24HR, CONT
     Route: 015
     Dates: start: 201710

REACTIONS (8)
  - Menstrual disorder [None]
  - Breast pain [Recovered/Resolved]
  - Menstruation irregular [None]
  - Therapeutic response unexpected [None]
  - Nervousness [None]
  - Abdominal pain lower [Recovered/Resolved]
  - Back pain [Recovered/Resolved]
  - Headache [None]

NARRATIVE: CASE EVENT DATE: 20180814
